FAERS Safety Report 9482511 (Version 1)
Quarter: 2013Q3

REPORT INFORMATION
  Report Type: Spontaneous
  Country: US (occurrence: US)
  Receive Date: 20130828
  Receipt Date: 20130828
  Transmission Date: 20140515
  Serious: No
  Sender: FDA-Public Use
  Company Number: US-SANOFI-AVENTIS-2013SA033277

PATIENT
  Sex: Male

DRUGS (2)
  1. ELIGARD [Suspect]
     Route: 065
  2. ZOLADEX [Concomitant]

REACTIONS (3)
  - Prostatic specific antigen increased [Unknown]
  - Hot flush [Unknown]
  - Blood testosterone increased [Unknown]
